FAERS Safety Report 19082128 (Version 1)
Quarter: 2021Q2

REPORT INFORMATION
  Report Type: Spontaneous
  Country: CN (occurrence: CN)
  Receive Date: 20210401
  Receipt Date: 20210401
  Transmission Date: 20210717
  Serious: Yes (Other)
  Sender: FDA-Public Use
  Company Number: CN-ROCHE-2775346

PATIENT
  Age: 43 Year
  Sex: Male

DRUGS (42)
  1. CYCLOPHOSPHAMIDE. [Concomitant]
     Active Substance: CYCLOPHOSPHAMIDE
     Dates: start: 20190705
  2. CYCLOPHOSPHAMIDE. [Concomitant]
     Active Substance: CYCLOPHOSPHAMIDE
     Dates: start: 20200411
  3. VINCRISTINE [Concomitant]
     Active Substance: VINCRISTINE
     Indication: B-CELL LYMPHOMA
     Dates: start: 2014
  4. ARSENIC TRIOXIDE. [Concomitant]
     Active Substance: ARSENIC TRIOXIDE
     Dates: start: 2018, end: 201810
  5. GEMCITABINE. [Concomitant]
     Active Substance: GEMCITABINE
     Dosage: ON 26/FEB/2021 AND 20/MAR/2021
     Route: 048
     Dates: start: 20210226
  6. RITUXIMAB. [Suspect]
     Active Substance: RITUXIMAB
     Route: 065
     Dates: start: 20190705
  7. DOXORUBICIN [Concomitant]
     Active Substance: DOXORUBICIN
     Dates: start: 2015
  8. ARSENIC TRIOXIDE. [Concomitant]
     Active Substance: ARSENIC TRIOXIDE
     Dates: start: 20190425
  9. ETOPOSIDE. [Concomitant]
     Active Substance: ETOPOSIDE
     Route: 048
     Dates: start: 20190426
  10. CISPLATIN. [Concomitant]
     Active Substance: CISPLATIN
     Dosage: ON DAY3 TO DAY4
     Dates: start: 2018
  11. CYCLOPHOSPHAMIDE. [Concomitant]
     Active Substance: CYCLOPHOSPHAMIDE
     Dates: start: 2018
  12. CYCLOPHOSPHAMIDE. [Concomitant]
     Active Substance: CYCLOPHOSPHAMIDE
     Dates: start: 20191115
  13. DOXORUBICIN [Concomitant]
     Active Substance: DOXORUBICIN
     Dates: start: 20191115
  14. PREDNISONE. [Concomitant]
     Active Substance: PREDNISONE
     Dates: start: 20190705
  15. RITUXIMAB. [Suspect]
     Active Substance: RITUXIMAB
     Indication: B-CELL LYMPHOMA
     Route: 065
     Dates: start: 2014
  16. DOXORUBICIN [Concomitant]
     Active Substance: DOXORUBICIN
     Indication: B-CELL LYMPHOMA
     Dates: start: 2014
  17. DOXORUBICIN [Concomitant]
     Active Substance: DOXORUBICIN
     Dates: start: 20190705
  18. RITUXIMAB. [Suspect]
     Active Substance: RITUXIMAB
     Dosage: ON 26/FEB/2021 AND 20/MAR/2021
     Route: 065
     Dates: start: 20210226
  19. VINCRISTINE [Concomitant]
     Active Substance: VINCRISTINE
     Dates: start: 2015
  20. VINCRISTINE [Concomitant]
     Active Substance: VINCRISTINE
     Dates: start: 20190705
  21. DEXAMETHASONE. [Concomitant]
     Active Substance: DEXAMETHASONE
     Indication: B-CELL LYMPHOMA
     Route: 048
  22. DEXAMETHASONE. [Concomitant]
     Active Substance: DEXAMETHASONE
     Dosage: FROM DAY1 TO DAY4 AND DAY9 TO DAY12
     Dates: start: 20190426
  23. GEMCITABINE. [Concomitant]
     Active Substance: GEMCITABINE
     Indication: B-CELL LYMPHOMA
     Route: 048
     Dates: start: 20190426
  24. RITUXIMAB. [Suspect]
     Active Substance: RITUXIMAB
     Route: 065
     Dates: start: 20200411
  25. CYCLOPHOSPHAMIDE. [Concomitant]
     Active Substance: CYCLOPHOSPHAMIDE
     Indication: B-CELL LYMPHOMA
     Dates: start: 2014
  26. VINCRISTINE [Concomitant]
     Active Substance: VINCRISTINE
     Dates: start: 20191115
  27. PREDNISONE. [Concomitant]
     Active Substance: PREDNISONE
     Indication: B-CELL LYMPHOMA
     Dates: start: 2014
  28. PREDNISONE. [Concomitant]
     Active Substance: PREDNISONE
     Dates: start: 20200411
  29. THALIDOMIDE [Concomitant]
     Active Substance: THALIDOMIDE
     Indication: B-CELL LYMPHOMA
  30. RITUXIMAB. [Suspect]
     Active Substance: RITUXIMAB
     Dosage: 03/MAY/2020, 09/JUL/2020, 13/SEP/2020 AND 11/DEC/2020
     Route: 065
     Dates: start: 20200503
  31. PREDNISONE. [Concomitant]
     Active Substance: PREDNISONE
     Dates: start: 20191115
  32. DEXAMETHASONE. [Concomitant]
     Active Substance: DEXAMETHASONE
     Dates: start: 2018, end: 201810
  33. ETOPOSIDE. [Concomitant]
     Active Substance: ETOPOSIDE
     Indication: B-CELL LYMPHOMA
     Dosage: ON DAY1 TO DAY2
     Route: 048
     Dates: start: 2018
  34. CISPLATIN. [Concomitant]
     Active Substance: CISPLATIN
     Indication: B-CELL LYMPHOMA
     Dosage: ON DAY1 TO DAY2
     Dates: start: 2018
  35. RITUXIMAB. [Suspect]
     Active Substance: RITUXIMAB
     Route: 065
     Dates: start: 20191115
  36. CYCLOPHOSPHAMIDE. [Concomitant]
     Active Substance: CYCLOPHOSPHAMIDE
     Dates: start: 2015
  37. DOXORUBICIN [Concomitant]
     Active Substance: DOXORUBICIN
     Dates: start: 20200411
  38. VINCRISTINE [Concomitant]
     Active Substance: VINCRISTINE
     Dates: start: 20200411
  39. PREDNISONE. [Concomitant]
     Active Substance: PREDNISONE
     Dates: start: 2015
  40. ARSENIC TRIOXIDE. [Concomitant]
     Active Substance: ARSENIC TRIOXIDE
     Indication: B-CELL LYMPHOMA
     Dates: start: 2015
  41. ETOPOSIDE. [Concomitant]
     Active Substance: ETOPOSIDE
     Dosage: ON DAY3 TO DAY4
     Route: 048
     Dates: start: 2018
  42. CISPLATIN. [Concomitant]
     Active Substance: CISPLATIN
     Dates: start: 20190426

REACTIONS (4)
  - Panniculitis [Unknown]
  - Pneumonitis [Unknown]
  - Myelosuppression [Unknown]
  - Pneumonia [Unknown]

NARRATIVE: CASE EVENT DATE: 2019
